FAERS Safety Report 7903572-5 (Version None)
Quarter: 2011Q4

REPORT INFORMATION
  Report Type: 
  Country: None (occurrence: None)
  Receive Date: 20111109
  Receipt Date: 20111109
  Transmission Date: 20120403
  Serious: Yes (Life-Threatening)
  Sender: FDA-Public Use
  Company Number: None

PATIENT
  Age: 49 Year
  Sex: Female
  Weight: 90.718 kg

DRUGS (1)
  1. ZOLPIDEM [Suspect]
     Indication: INSOMNIA
     Dosage: 1
     Route: 048
     Dates: start: 20100713, end: 20100828

REACTIONS (4)
  - IMPRISONMENT [None]
  - SOMNAMBULISM [None]
  - AMNESIA [None]
  - ABNORMAL SLEEP-RELATED EVENT [None]
